FAERS Safety Report 8917779 (Version 5)
Quarter: 2013Q1

REPORT INFORMATION
  Report Type: Report from Study
  Country: US (occurrence: US)
  Receive Date: 20121120
  Receipt Date: 20130301
  Transmission Date: 20140127
  Serious: Yes (Other)
  Sender: FDA-Public Use
  Company Number: US-ABBOTT-12P-163-1004882-00

PATIENT
  Age: 51 Year
  Sex: Female

DRUGS (9)
  1. HUMIRA [Suspect]
     Indication: CROHN^S DISEASE
     Dates: start: 20121008
  2. HUMIRA [Suspect]
     Indication: ULCER
  3. MULTIVITAMINS [Concomitant]
     Indication: PRODUCT USED FOR UNKNOWN INDICATION
     Dosage: 2-4 DAILY
     Route: 048
  4. ENTOCORT [Concomitant]
     Indication: CROHN^S DISEASE
     Dosage: 9 MG DAILY
     Route: 048
  5. ENTOCORT [Concomitant]
     Dosage: 6 MG DAILY
     Route: 048
     Dates: start: 20121031
  6. CALCIUM CITRATE [Concomitant]
     Indication: PRODUCT USED FOR UNKNOWN INDICATION
     Dosage: 3  DAYS A WEEK
  7. FOLIC ACID [Concomitant]
     Indication: PRODUCT USED FOR UNKNOWN INDICATION
  8. VITAMIN D3 [Concomitant]
     Indication: PRODUCT USED FOR UNKNOWN INDICATION
  9. VITAMIN B12 [Concomitant]
     Indication: PRODUCT USED FOR UNKNOWN INDICATION

REACTIONS (11)
  - Large intestinal stenosis [Unknown]
  - Drug ineffective [Not Recovered/Not Resolved]
  - Injection site haemorrhage [Recovered/Resolved]
  - Increased appetite [Not Recovered/Not Resolved]
  - Weight increased [Not Recovered/Not Resolved]
  - Nasopharyngitis [Recovered/Resolved]
  - Oropharyngeal pain [Recovered/Resolved]
  - Sneezing [Recovered/Resolved]
  - Pruritus [Unknown]
  - Scab [Unknown]
  - Large intestinal ulcer [Unknown]
